FAERS Safety Report 24024182 (Version 1)
Quarter: 2024Q2

REPORT INFORMATION
  Report Type: Spontaneous
  Country: HU (occurrence: HU)
  Receive Date: 20240627
  Receipt Date: 20240627
  Transmission Date: 20240716
  Serious: Yes (Hospitalization)
  Sender: FDA-Public Use
  Company Number: HU-NOVITIUMPHARMA-2024HUNVP01103

PATIENT
  Age: 68 Year
  Sex: Male

DRUGS (5)
  1. DEXAMETHASONE [Suspect]
     Active Substance: DEXAMETHASONE
     Indication: Acquired haemophilia
  2. DEXAMETHASONE [Suspect]
     Active Substance: DEXAMETHASONE
  3. CYCLOPHOSPHAMIDE [Concomitant]
     Active Substance: CYCLOPHOSPHAMIDE
     Indication: Acquired haemophilia
  4. RITUXIMAB [Concomitant]
     Active Substance: RITUXIMAB
     Indication: Acquired haemophilia
  5. ADALIMUMAB [Concomitant]
     Active Substance: ADALIMUMAB\ISOPROPYL ALCOHOL
     Indication: Rheumatoid arthritis
     Route: 058

REACTIONS (1)
  - Klebsiella infection [Recovering/Resolving]
